FAERS Safety Report 13515448 (Version 1)
Quarter: 2017Q2

REPORT INFORMATION
  Report Type: Spontaneous
  Country: US (occurrence: US)
  Receive Date: 20170504
  Receipt Date: 20170504
  Transmission Date: 20170830
  Serious: Yes (Hospitalization, Other)
  Sender: FDA-Public Use
  Company Number: US-PFIZER INC-2017196087

PATIENT
  Age: 6 Decade
  Sex: Female
  Weight: 70 kg

DRUGS (1)
  1. PREMARIN [Suspect]
     Active Substance: ESTROGENS, CONJUGATED
     Dosage: UNK

REACTIONS (13)
  - Migraine [Unknown]
  - Weight fluctuation [Unknown]
  - Fungal infection [Unknown]
  - Alopecia [Not Recovered/Not Resolved]
  - Blood pressure abnormal [Unknown]
  - Hypersensitivity [Unknown]
  - Abdominal pain upper [Unknown]
  - Haemorrhage [Unknown]
  - Nervousness [Not Recovered/Not Resolved]
  - Abdominal distension [Unknown]
  - Breast mass [Recovered/Resolved]
  - Drug ineffective [Unknown]
  - Liver disorder [Recovered/Resolved]
